FAERS Safety Report 18418472 (Version 2)
Quarter: 2020Q4

REPORT INFORMATION
  Report Type: Spontaneous
  Country: US (occurrence: US)
  Receive Date: 20201023
  Receipt Date: 20201217
  Transmission Date: 20210114
  Serious: No
  Sender: FDA-Public Use
  Company Number: US-GLAXOSMITHKLINE-US2020205728

PATIENT
  Sex: Male

DRUGS (1)
  1. BREO ELLIPTA [Suspect]
     Active Substance: FLUTICASONE FUROATE\VILANTEROL TRIFENATATE
     Indication: MULTIPLE ALLERGIES
     Dosage: 1 PUFF(S)
     Route: 055

REACTIONS (6)
  - Dyspnoea [Unknown]
  - Product use in unapproved indication [Unknown]
  - Overdose [Unknown]
  - Drug ineffective [Unknown]
  - Product dose omission issue [Unknown]
  - Product complaint [Unknown]
